FAERS Safety Report 19209175 (Version 3)
Quarter: 2021Q2

REPORT INFORMATION
  Report Type: Spontaneous
  Country: US (occurrence: US)
  Receive Date: 20210504
  Receipt Date: 20210518
  Transmission Date: 20210717
  Serious: No
  Sender: FDA-Public Use
  Company Number: US-BIOGEN-2020BI00899551

PATIENT
  Sex: Female

DRUGS (1)
  1. TYSABRI [Suspect]
     Active Substance: NATALIZUMAB
     Indication: MULTIPLE SCLEROSIS
     Route: 042
     Dates: start: 20110720, end: 20200930

REACTIONS (6)
  - Hyponatraemia [Unknown]
  - Infection [Unknown]
  - Skin infection [Recovered/Resolved]
  - Decreased immune responsiveness [Unknown]
  - Blood immunoglobulin G decreased [Not Recovered/Not Resolved]
  - Chronic obstructive pulmonary disease [Unknown]
